FAERS Safety Report 9432383 (Version 2)
Quarter: 2013Q4

REPORT INFORMATION
  Report Type: Spontaneous
  Country: US (occurrence: US)
  Receive Date: 20130731
  Receipt Date: 20131010
  Transmission Date: 20140711
  Serious: Yes (Other)
  Sender: FDA-Public Use
  Company Number: US-ELI_LILLY_AND_COMPANY-US201307007812

PATIENT
  Age: 56 Year
  Sex: Male

DRUGS (6)
  1. CYMBALTA [Suspect]
     Indication: ANXIETY
     Dosage: 60 MG, QD
     Route: 065
     Dates: start: 2012
  2. LEXAPRO [Concomitant]
     Dosage: 20 MG, QD
     Route: 065
  3. LISINOPRIL [Concomitant]
     Dosage: 5 MG, UNKNOWN
     Route: 065
  4. FLOMAX [Concomitant]
     Dosage: UNK, UNKNOWN
     Route: 065
  5. NORCO [Concomitant]
     Dosage: UNK, UNKNOWN
     Route: 065
  6. MICROBID [Concomitant]
     Dosage: 100 MG, UNKNOWN
     Route: 065

REACTIONS (6)
  - Prostate infection [Unknown]
  - Paraesthesia [Not Recovered/Not Resolved]
  - Insomnia [Unknown]
  - Dyskinesia [Unknown]
  - Muscle spasms [Unknown]
  - Heart rate increased [Unknown]
